FAERS Safety Report 4590647-4 (Version None)
Quarter: 2005Q1

REPORT INFORMATION
  Report Type: 
  Country: None (occurrence: None)
  Receive Date: 20050224
  Receipt Date: 20050214
  Transmission Date: 20050727
  Serious: Yes (Death, Hospitalization)
  Sender: FDA-Public Use
  Company Number: JP-JNJFOC-20031005966

PATIENT
  Sex: Male

DRUGS (11)
  1. REMICADE [Suspect]
     Route: 041
  2. REMICADE [Suspect]
     Route: 041
  3. REMICADE [Suspect]
     Route: 041
  4. REMICADE [Suspect]
     Route: 041
  5. REMICADE [Suspect]
     Route: 041
  6. REMICADE [Suspect]
     Route: 041
  7. REMICADE [Suspect]
     Route: 041
  8. REMICADE [Suspect]
     Indication: CROHN'S DISEASE
     Route: 041
  9. RHEUMATREX [Concomitant]
  10. IMRAN [Concomitant]
  11. HPN [Concomitant]

REACTIONS (7)
  - DEATH [None]
  - DRUG INEFFECTIVE [None]
  - HEPATIC FAILURE [None]
  - MYCOBACTERIUM AVIUM COMPLEX INFECTION [None]
  - PNEUMONIA [None]
  - RENAL FAILURE [None]
  - SEPSIS [None]
